APPROVED DRUG PRODUCT: BENZPHETAMINE HYDROCHLORIDE
Active Ingredient: BENZPHETAMINE HYDROCHLORIDE
Strength: 50MG
Dosage Form/Route: TABLET;ORAL
Application: A090346 | Product #001 | TE Code: AA
Applicant: EPIC PHARMA LLC
Approved: Dec 15, 2015 | RLD: No | RS: No | Type: RX